FAERS Safety Report 18619931 (Version 2)
Quarter: 2021Q1

REPORT INFORMATION
  Report Type: Spontaneous
  Country: US (occurrence: US)
  Receive Date: 20201215
  Receipt Date: 20210127
  Transmission Date: 20210419
  Serious: No
  Sender: FDA-Public Use
  Company Number: US-PFIZER INC-2020409344

PATIENT
  Age: 63 Year
  Sex: Female

DRUGS (2)
  1. XELJANZ [Suspect]
     Active Substance: TOFACITINIB CITRATE
     Indication: RHEUMATOID ARTHRITIS
     Dosage: 5 MG, 2X/DAY
     Route: 048
     Dates: start: 202007
  2. LISINOPRIL. [Concomitant]
     Active Substance: LISINOPRIL
     Dosage: UNK

REACTIONS (5)
  - Discouragement [Unknown]
  - Headache [Recovered/Resolved]
  - Depressed mood [Unknown]
  - Product prescribing error [Unknown]
  - Insomnia [Unknown]

NARRATIVE: CASE EVENT DATE: 2020
